FAERS Safety Report 9260615 (Version 2)
Quarter: 2013Q2

REPORT INFORMATION
  Report Type: Spontaneous
  Country: US (occurrence: US)
  Receive Date: 20130429
  Receipt Date: 20130506
  Transmission Date: 20140414
  Serious: No
  Sender: FDA-Public Use
  Company Number: US-009507513-1304USA016401

PATIENT
  Sex: 0

DRUGS (1)
  1. NEXPLANON [Suspect]
     Dosage: 1 DF, UNK
     Route: 059
     Dates: start: 20130423

REACTIONS (3)
  - Device deployment issue [Unknown]
  - Device difficult to use [Unknown]
  - No adverse event [Unknown]
